FAERS Safety Report 9192949 (Version 1)
Quarter: 2013Q1

REPORT INFORMATION
  Report Type: Spontaneous
  Country: BR (occurrence: BR)
  Receive Date: 20130327
  Receipt Date: 20130327
  Transmission Date: 20140127
  Serious: Yes (Hospitalization)
  Sender: FDA-Public Use
  Company Number: BR-SANOFI-AVENTIS-2013SA029325

PATIENT
  Age: 40 Year
  Sex: Female
  Weight: 57 kg

DRUGS (1)
  1. CLEXANE [Suspect]
     Indication: PREGNANCY
     Route: 058
     Dates: start: 2012, end: 2013

REACTIONS (3)
  - Abortion spontaneous [Unknown]
  - Exposure during pregnancy [Unknown]
  - Off label use [Unknown]
